FAERS Safety Report 7826381-4 (Version None)
Quarter: 2011Q4

REPORT INFORMATION
  Report Type: 
  Country: None (occurrence: None)
  Receive Date: 20111020
  Receipt Date: 20111013
  Transmission Date: 20120403
  Serious: No
  Sender: FDA-Public Use
  Company Number: US-BIOGENIDEC-2011BI039426

PATIENT
  Sex: Female

DRUGS (6)
  1. ZANAFLEX [Concomitant]
     Indication: MUSCLE TWITCHING
  2. NEURONTIN [Concomitant]
     Indication: PAIN IN EXTREMITY
  3. ZANAFLEX [Concomitant]
     Indication: MUSCULOSKELETAL STIFFNESS
  4. VESICARE [Concomitant]
     Indication: URINARY INCONTINENCE
  5. TYSABRI [Suspect]
     Indication: MULTIPLE SCLEROSIS
     Route: 042
     Dates: start: 20080529, end: 20100830
  6. TYSABRI [Suspect]
     Route: 042
     Dates: start: 20110101, end: 20110701

REACTIONS (6)
  - MUSCLE TWITCHING [None]
  - URINARY INCONTINENCE [None]
  - WHITE BLOOD CELL COUNT INCREASED [None]
  - MUSCULOSKELETAL STIFFNESS [None]
  - MULTIPLE SCLEROSIS RELAPSE [None]
  - NASOPHARYNGITIS [None]
